FAERS Safety Report 22209044 (Version 1)
Quarter: 2023Q2

REPORT INFORMATION
  Report Type: Other
  Country: US (occurrence: US)
  Receive Date: 20230413
  Receipt Date: 20230413
  Transmission Date: 20230722
  Serious: Yes (Other)
  Sender: FDA-Public Use
  Company Number: US-TRAVERE-2022TVT00584

PATIENT
  Age: 4 Month
  Sex: Male

DRUGS (2)
  1. CHOLIC ACID [Suspect]
     Active Substance: CHOLIC ACID
     Indication: Product used for unknown indication
     Route: 048
     Dates: start: 20221013, end: 20221207
  2. Poly-Vi-Sol/Iron [Concomitant]

REACTIONS (1)
  - Hepatic failure [Unknown]
